FAERS Safety Report 25869776 (Version 1)
Quarter: 2025Q4

REPORT INFORMATION
  Report Type: Spontaneous
  Country: GB (occurrence: GB)
  Receive Date: 20251001
  Receipt Date: 20251001
  Transmission Date: 20260117
  Serious: Yes (Other)
  Sender: TEVA
  Company Number: GB-MHRA-TPP35272391C21135059YC1758906649898

PATIENT
  Age: 73 Year
  Sex: Male
  Weight: 89 kg

DRUGS (10)
  1. OFLOXACIN [Suspect]
     Active Substance: OFLOXACIN
     Indication: Ill-defined disorder
     Dosage: FOR 14 DAYS, TO TRE..
     Route: 065
     Dates: start: 20250924
  2. MACROGOL COMPOUND [Concomitant]
     Indication: Constipation
     Dosage: TAKE ONE OR TWO SACHETS DAILY
     Dates: start: 20240731
  3. ALBUTEROL [Concomitant]
     Active Substance: ALBUTEROL
     Indication: Ill-defined disorder
     Dosage: TIME INTERVAL: AS NECESSARY: INHALE
     Dates: start: 20250811, end: 20250908
  4. COLCHICINE [Concomitant]
     Active Substance: COLCHICINE
     Indication: Ill-defined disorder
     Dosage: TAKE ONE 2 - 4 TIMES PER DAY TILL SYMPTOMS RELI...
     Dates: start: 20240731
  5. ALLOPURINOL [Concomitant]
     Active Substance: ALLOPURINOL
     Indication: Gout
     Dates: start: 20240919
  6. LANSOPRAZOLE [Concomitant]
     Active Substance: LANSOPRAZOLE
     Indication: Ill-defined disorder
     Dates: start: 20240731
  7. INDAPAMIDE [Concomitant]
     Active Substance: INDAPAMIDE
     Indication: Ill-defined disorder
     Dosage: EACH MORNING
     Dates: start: 20240731
  8. MOMETASONE [Concomitant]
     Active Substance: MOMETASONE
     Indication: Ill-defined disorder
     Dosage: APPLY ONCE DAILY TO AFFECTED AREADAILY
     Dates: start: 20240731
  9. PROCTOSEDYL [Concomitant]
     Active Substance: DIBUCAINE HYDROCHLORIDE\HYDROCORTISONE
     Indication: Ill-defined disorder
     Dosage: APPLY EVERY TIME AFTER OPENING ...
     Dates: start: 20250924
  10. DERMOL [Concomitant]
     Active Substance: BENZALKONIUM CHLORIDE\CHLORHEXIDINE HYDROCHLORIDE\ISOPROPYL MYRISTATE\PARAFFIN
     Indication: Ill-defined disorder
     Dosage: USE AS DIRECTED AS SOAP SUBSTITUTE
     Dates: start: 20240731

REACTIONS (1)
  - Hallucination, auditory [Unknown]

NARRATIVE: CASE EVENT DATE: 20250924
